FAERS Safety Report 16278300 (Version 1)
Quarter: 2019Q2

REPORT INFORMATION
  Report Type: Spontaneous
  Country: US (occurrence: US)
  Receive Date: 20190506
  Receipt Date: 20190506
  Transmission Date: 20190711
  Serious: Yes (Death)
  Sender: FDA-Public Use
  Company Number: US-BEXIMCO-2019BEX00019

PATIENT
  Age: 75 Year
  Sex: Female

DRUGS (1)
  1. SOTALOL HYDROCHLORIDE. [Suspect]
     Active Substance: SOTALOL HYDROCHLORIDE
     Indication: ATRIAL FIBRILLATION
     Dosage: 80 MG, 2X/DAY
     Route: 065

REACTIONS (3)
  - Cardiac arrest [Fatal]
  - Torsade de pointes [Fatal]
  - Neurological examination abnormal [Fatal]
